FAERS Safety Report 6728077-9 (Version None)
Quarter: 2010Q2

REPORT INFORMATION
  Report Type: 
  Country: None (occurrence: None)
  Receive Date: 20100517
  Receipt Date: 20100511
  Transmission Date: 20101027
  Serious: Yes (Other)
  Sender: FDA-Public Use
  Company Number: A0859659A

PATIENT
  Sex: Female

DRUGS (1)
  1. ACITRETIN [Suspect]
     Indication: PSORIASIS
     Dosage: 10MG THREE TIMES PER WEEK
     Route: 048
     Dates: start: 20070101, end: 20100301

REACTIONS (4)
  - ANAEMIA [None]
  - BLOOD DISORDER [None]
  - MYELODYSPLASTIC SYNDROME [None]
  - THROMBOCYTOPENIA [None]
